FAERS Safety Report 16504341 (Version 5)
Quarter: 2021Q4

REPORT INFORMATION
  Report Type: Spontaneous
  Country: US (occurrence: US)
  Receive Date: 20190701
  Receipt Date: 20211125
  Transmission Date: 20220303
  Serious: No
  Sender: FDA-Public Use
  Company Number: US-PFIZER INC-2019269088

PATIENT
  Age: 38 Year
  Sex: Female
  Weight: 66 kg

DRUGS (3)
  1. PREMARIN [Suspect]
     Active Substance: ESTROGENS, CONJUGATED
     Indication: Hot flush
     Dosage: 0.625 MG, 1X/DAY
     Route: 048
  2. PREMARIN [Suspect]
     Active Substance: ESTROGENS, CONJUGATED
     Indication: Pain
     Dosage: 1.25 MG, AS NEEDED (1.25MG TABLETS TAKEN BY MOUTH ONCE DAILY SPORADICALLY AS NEEDED)
     Route: 048
  3. PREMARIN [Suspect]
     Active Substance: ESTROGENS, CONJUGATED
     Dosage: 1.25 MG, WEEKLY

REACTIONS (5)
  - Therapeutic response unexpected [Unknown]
  - Rash [Recovered/Resolved]
  - Anxiety [Recovered/Resolved]
  - Product prescribing error [Unknown]
  - Off label use [Unknown]

NARRATIVE: CASE EVENT DATE: 19790101
